FAERS Safety Report 8957670 (Version 1)
Quarter: 2012Q4

REPORT INFORMATION
  Report Type: 
  Country: JP (occurrence: JP)
  Receive Date: 20121211
  Receipt Date: 20121211
  Transmission Date: 20130627
  Serious: No
  Sender: FDA-Public Use
  Company Number: JP-ELI_LILLY_AND_COMPANY-JP201212000549

PATIENT
  Age: 30 Year
  Sex: Male

DRUGS (2)
  1. CYMBALTA [Suspect]
     Indication: DEPRESSION
     Dosage: 40 mg, qd
     Route: 048
     Dates: end: 20121112
  2. CYMBALTA [Suspect]
     Dosage: 20 mg, qd
     Route: 048
     Dates: start: 20121113

REACTIONS (1)
  - Liver function test abnormal [Recovered/Resolved]
